FAERS Safety Report 7804164-9 (Version None)
Quarter: 2011Q4

REPORT INFORMATION
  Report Type: 
  Country: None (occurrence: None)
  Receive Date: 20111010
  Receipt Date: 20110928
  Transmission Date: 20120403
  Serious: Yes (Hospitalization)
  Sender: FDA-Public Use
  Company Number: AT-JNJFOC-20110905972

PATIENT
  Sex: Male

DRUGS (6)
  1. GOSERELIN [Concomitant]
     Indication: PROSTATE CANCER
     Route: 058
     Dates: start: 20050525
  2. ABIRATERONE ACETATE [Suspect]
     Route: 048
     Dates: start: 20081127
  3. DICLOFENAC [Concomitant]
     Indication: CANCER PAIN
     Route: 048
     Dates: start: 20070601
  4. PREDNISOLONE [Suspect]
     Indication: PROSTATE CANCER METASTATIC
     Route: 048
     Dates: start: 20101123
  5. ABIRATERONE ACETATE [Suspect]
     Indication: PROSTATE CANCER METASTATIC
     Route: 048
     Dates: start: 20101123
  6. GOSERELIN [Concomitant]
     Route: 058
     Dates: start: 20081127

REACTIONS (1)
  - CONCUSSION [None]
